FAERS Safety Report 21353630 (Version 1)
Quarter: 2022Q3

REPORT INFORMATION
  Report Type: Spontaneous
  Country: US (occurrence: None)
  Receive Date: 20220919
  Receipt Date: 20220919
  Transmission Date: 20221027
  Serious: No
  Sender: FDA-Public Use
  Company Number: None

PATIENT
  Age: 16 Year
  Sex: Male

DRUGS (1)
  1. HUMIRA [Suspect]
     Active Substance: ADALIMUMAB
     Indication: Hidradenitis
     Dosage: OTHER STRENGTH : 80-40;?OTHER FREQUENCY : OTHER;?
     Route: 058
     Dates: start: 20220913

REACTIONS (2)
  - Product distribution issue [None]
  - Product storage error [None]

NARRATIVE: CASE EVENT DATE: 20220914
